FAERS Safety Report 18645068 (Version 2)
Quarter: 2021Q1

REPORT INFORMATION
  Report Type: Spontaneous
  Country: US (occurrence: US)
  Receive Date: 20201221
  Receipt Date: 20210205
  Transmission Date: 20210419
  Serious: No
  Sender: FDA-Public Use
  Company Number: US-PFIZER INC-2020423386

PATIENT
  Age: 20 Year
  Sex: Male

DRUGS (3)
  1. XELJANZ [Suspect]
     Active Substance: TOFACITINIB CITRATE
     Indication: RECTAL HAEMORRHAGE
     Dosage: 5 MG, 1X/DAY
     Route: 048
     Dates: start: 202011
  2. MESALAMINE. [Concomitant]
     Active Substance: MESALAMINE
     Dosage: UNK
  3. XELJANZ [Suspect]
     Active Substance: TOFACITINIB CITRATE
     Indication: COLITIS ULCERATIVE
     Dosage: 2X/DAY (5MG, TWO TABLETS, TWICE DAILY)
     Route: 048
     Dates: start: 202011

REACTIONS (3)
  - Product communication issue [Unknown]
  - Condition aggravated [Unknown]
  - Wrong dose [Unknown]
